FAERS Safety Report 10756142 (Version 1)
Quarter: 2015Q1

REPORT INFORMATION
  Report Type: Spontaneous
  Country: US (occurrence: None)
  Receive Date: 20150123
  Receipt Date: 20150123
  Transmission Date: 20150721
  Serious: Yes (Other)
  Sender: FDA-Public Use
  Company Number: 2014TUS011302

PATIENT
  Age: 59 Year
  Sex: Male
  Weight: 81.2 kg

DRUGS (1)
  1. ENTYVIO [Suspect]
     Active Substance: VEDOLIZUMAB
     Indication: CROHN^S DISEASE
     Dosage: Q8WEEKS
     Route: 042
     Dates: start: 20140912, end: 20140912

REACTIONS (2)
  - Gout [None]
  - Osteochondrosis [None]
